FAERS Safety Report 13225996 (Version 1)
Quarter: 2017Q1

REPORT INFORMATION
  Report Type: Spontaneous
  Country: ES (occurrence: US)
  Receive Date: 20170211
  Receipt Date: 20170211
  Transmission Date: 20170428
  Serious: Yes (Disabling)
  Sender: FDA-Public Use
  Company Number: None

PATIENT
  Age: 35 Year
  Sex: Female
  Weight: 64 kg

DRUGS (4)
  1. MAXSULID [Concomitant]
     Active Substance: NIMESULIDE
  2. TEA [Concomitant]
     Active Substance: TEA LEAF
  3. TAMIRAM, LEVOFLOXACINO [Suspect]
     Active Substance: LEVOFLOXACIN
     Indication: URINARY TRACT INFECTION
     Dosage: ?          QUANTITY:1 TABLET(S);?
     Dates: start: 20161103, end: 20161105
  4. MAGNESIUM [Concomitant]
     Active Substance: MAGNESIUM

REACTIONS (7)
  - Neuropathy peripheral [None]
  - Muscular weakness [None]
  - Pain [None]
  - Muscle contractions involuntary [None]
  - Myalgia [None]
  - Hypoaesthesia [None]
  - Shock [None]

NARRATIVE: CASE EVENT DATE: 20161105
